FAERS Safety Report 9381405 (Version 1)
Quarter: 2013Q3

REPORT INFORMATION
  Report Type: Spontaneous
  Country: US (occurrence: US)
  Receive Date: 20130703
  Receipt Date: 20130703
  Transmission Date: 20140515
  Serious: Yes (Other)
  Sender: FDA-Public Use
  Company Number: PHEH2013US013971

PATIENT
  Sex: Male

DRUGS (11)
  1. EXFORGE [Suspect]
     Dosage: (160 MG VALS/ 5 MG AMLO), UKN
  2. EXFORGE [Suspect]
     Dosage: (160 MG VALS/ 5 MG AMLO), UKN
  3. DIOVAN [Suspect]
     Dosage: UNK
  4. EXFORGE HCT [Suspect]
     Dosage: UNK
  5. AZILECT [Concomitant]
     Dosage: UNK
  6. CYMBALTA [Concomitant]
  7. CARBIDOPA LEVODOPA [Concomitant]
  8. HYDROCHLOROTHIAZIDE [Concomitant]
     Dosage: UNK
  9. ASPIRIN [Concomitant]
     Dosage: SMALL DOSE
  10. AMANTADINE [Concomitant]
     Dosage: UNK
  11. CLONIDINE [Concomitant]
     Dosage: UNK

REACTIONS (2)
  - Parkinson^s disease [Unknown]
  - Weight decreased [Unknown]
